FAERS Safety Report 9855249 (Version 2)
Quarter: 2014Q3

REPORT INFORMATION
  Report Type: Spontaneous
  Country: US (occurrence: US)
  Receive Date: 20140130
  Receipt Date: 20140805
  Transmission Date: 20150326
  Serious: Yes (Life-Threatening, Hospitalization, Other)
  Sender: FDA-Public Use
  Company Number: US-BAYER-2014-014153

PATIENT
  Age: 36 Year
  Sex: Female

DRUGS (1)
  1. MIRENA [Suspect]
     Active Substance: LEVONORGESTREL
     Dosage: 20 MCG/24HR, CONT
     Route: 015
     Dates: start: 20050729, end: 20120229

REACTIONS (9)
  - Embedded device [None]
  - Abdominal pain lower [None]
  - Emotional distress [None]
  - General physical health deterioration [None]
  - Device misuse [None]
  - Anxiety [None]
  - Injury [None]
  - Pain [None]
  - Anhedonia [None]

NARRATIVE: CASE EVENT DATE: 200811
